FAERS Safety Report 9533076 (Version 2)
Quarter: 2013Q3

REPORT INFORMATION
  Report Type: Spontaneous
  Country: FR (occurrence: FR)
  Receive Date: 20130918
  Receipt Date: 20130920
  Transmission Date: 20140515
  Serious: Yes (Other)
  Sender: FDA-Public Use
  Company Number: FR-VERTEX PHARMACEUTICALS INC-2013-009642

PATIENT
  Age: 75 Year
  Sex: Female
  Weight: 90 kg

DRUGS (5)
  1. INCIVO [Suspect]
     Indication: HEPATITIS C
     Dosage: 750 MG, TID
     Dates: start: 20110505
  2. PEGASYS [Suspect]
     Indication: HEPATITIS C
     Dosage: 180 MG, QW
     Route: 065
     Dates: start: 20110505
  3. COPEGUS [Suspect]
     Indication: HEPATITIS C
     Dosage: 200 MG, UNK
     Route: 065
     Dates: start: 20110505
  4. TEMERIT [Concomitant]
     Indication: HYPERTENSION
     Dosage: 5 MG, QD
     Route: 065
  5. TENSTATEN [Concomitant]
     Indication: HYPERTENSION
     Dosage: 50 MG, QD
     Route: 065

REACTIONS (4)
  - White blood cell count decreased [Unknown]
  - Neutropenia [Recovered/Resolved]
  - Thrombocytopenia [Unknown]
  - Haemoglobin decreased [Unknown]
